FAERS Safety Report 19298572 (Version 2)
Quarter: 2021Q3

REPORT INFORMATION
  Report Type: Spontaneous
  Country: BE (occurrence: BE)
  Receive Date: 20210524
  Receipt Date: 20210920
  Transmission Date: 20211014
  Serious: Yes (Hospitalization)
  Sender: FDA-Public Use
  Company Number: NVSC2021BE111059

PATIENT
  Age: 51 Year
  Sex: Male
  Weight: 96.1 kg

DRUGS (15)
  1. MEDROL [Concomitant]
     Active Substance: METHYLPREDNISOLONE
     Indication: PRODUCT USED FOR UNKNOWN INDICATION
     Dosage: 80 MG
     Route: 048
     Dates: start: 20210413, end: 20210415
  2. CYTARABINE. [Suspect]
     Active Substance: CYTARABINE
     Dosage: 4440 MG, ONCE/SINGLE
     Route: 042
     Dates: start: 20210407
  3. TAVEGYL [Concomitant]
     Active Substance: CLEMASTINE FUMARATE
     Indication: PRODUCT USED FOR UNKNOWN INDICATION
     Dosage: 2 MG
     Route: 042
     Dates: start: 20210406, end: 20210406
  4. SOLU?MEDROL [Concomitant]
     Active Substance: METHYLPREDNISOLONE SODIUM SUCCINATE
     Indication: PRODUCT USED FOR UNKNOWN INDICATION
     Dosage: 80
     Route: 042
     Dates: start: 20210412, end: 20210412
  5. CARBOPLATIN. [Suspect]
     Active Substance: CARBOPLATIN
     Indication: DIFFUSE LARGE B-CELL LYMPHOMA STAGE IV
     Dosage: 861.9 MG, EVERY 3 WEEKS (1Q3W)
     Route: 042
     Dates: start: 20210406
  6. DEXAMETHASONE. [Suspect]
     Active Substance: DEXAMETHASONE
     Indication: DIFFUSE LARGE B-CELL LYMPHOMA STAGE IV
  7. RITUXIMAB. [Suspect]
     Active Substance: RITUXIMAB
     Dosage: 375 MG/M2, EVERY 3 WEEKS (1Q3W)
     Route: 042
     Dates: start: 20210406, end: 20210406
  8. DEXAMETHASONE. [Suspect]
     Active Substance: DEXAMETHASONE
     Indication: B-CELL LYMPHOMA
     Dosage: 40 MG, 1X/DAY
     Route: 042
     Dates: start: 20210406
  9. RITUXIMAB. [Suspect]
     Active Substance: RITUXIMAB
     Indication: B-CELL LYMPHOMA
     Dosage: 832.5 MG, ONCE/SINGLE
     Route: 065
     Dates: start: 20210406
  10. PARACETAMOL [Concomitant]
     Active Substance: ACETAMINOPHEN
     Indication: PREMEDICATION
     Dosage: 1 G
     Route: 048
     Dates: start: 20210412, end: 20210412
  11. CYTARABINE. [Suspect]
     Active Substance: CYTARABINE
     Indication: B-CELL LYMPHOMA
     Dosage: 2000 MG/M2, EVERY 3 WEEKS (1Q3W)
     Route: 042
     Dates: start: 20210406, end: 20210406
  12. CYTARABINE. [Suspect]
     Active Substance: CYTARABINE
     Indication: DIFFUSE LARGE B-CELL LYMPHOMA STAGE IV
     Dosage: 4440 MG
     Route: 042
     Dates: start: 20210406, end: 20210406
  13. CYTARABINE. [Suspect]
     Active Substance: CYTARABINE
     Dosage: 2000 MG, EVERY 3 WEEKS (1Q3W)
     Route: 042
     Dates: start: 20210407, end: 20210407
  14. TAVEGYL [Concomitant]
     Active Substance: CLEMASTINE FUMARATE
     Indication: PREMEDICATION
     Dosage: 2 MG
     Route: 042
     Dates: start: 20210412, end: 20210412
  15. PARACETAMOL [Concomitant]
     Active Substance: ACETAMINOPHEN
     Indication: PRODUCT USED FOR UNKNOWN INDICATION
     Dosage: 1 G
     Route: 048
     Dates: start: 20210406, end: 20210406

REACTIONS (1)
  - Thrombocytopenia [Recovered/Resolved]

NARRATIVE: CASE EVENT DATE: 20210419
